FAERS Safety Report 8766072 (Version 1)
Quarter: 2012Q4

REPORT INFORMATION
  Report Type: Report from Study
  Country: PT (occurrence: PT)
  Receive Date: 20120904
  Receipt Date: 20120904
  Transmission Date: 20130627
  Serious: Yes (Other)
  Sender: FDA-Public Use
  Company Number: PT-ROCHE-1098048

PATIENT
  Age: 43 Year
  Sex: Female

DRUGS (4)
  1. CELLCEPT [Suspect]
     Indication: NEUROPSYCHIATRIC LUPUS
  2. CELLCEPT [Suspect]
     Indication: SYSTEMIC LUPUS ERYTHEMATOSUS
  3. MABTHERA [Suspect]
     Indication: NEUROPSYCHIATRIC LUPUS
     Route: 065
  4. MABTHERA [Suspect]
     Indication: SYSTEMIC LUPUS ERYTHEMATOSUS

REACTIONS (2)
  - Treatment failure [Unknown]
  - Hypogammaglobulinaemia [Unknown]
